FAERS Safety Report 16897860 (Version 1)
Quarter: 2019Q4

REPORT INFORMATION
  Report Type: Spontaneous
  Country: ZA (occurrence: ZA)
  Receive Date: 20191009
  Receipt Date: 20191009
  Transmission Date: 20200122
  Serious: Yes (Other)
  Sender: FDA-Public Use
  Company Number: ZA-MACLEODS PHARMACEUTICALS US LTD-MAC2019023147

PATIENT

DRUGS (14)
  1. BACTRIM [Concomitant]
     Active Substance: SULFAMETHOXAZOLE\TRIMETHOPRIM
     Indication: PRODUCT USED FOR UNKNOWN INDICATION
     Dosage: UNK
     Route: 065
  2. LAMIVUDINE. [Concomitant]
     Active Substance: LAMIVUDINE
     Indication: RETROVIRAL INFECTION
     Route: 065
  3. ISONIAZID. [Suspect]
     Active Substance: ISONIAZID
     Indication: TUBERCULOSIS
     Dosage: 300 MILLIGRAM, QD
     Route: 048
     Dates: start: 20181127
  4. CLOFAZIMINE [Suspect]
     Active Substance: CLOFAZIMINE
     Indication: TUBERCULOSIS
     Dosage: 100 MILLIGRAM, QD
     Route: 048
     Dates: start: 20181127
  5. ABACAVIR. [Concomitant]
     Active Substance: ABACAVIR
     Indication: RETROVIRAL INFECTION
     Dosage: UNK
     Route: 065
  6. LEVOFLOXACIN 500 MG [Suspect]
     Active Substance: LEVOFLOXACIN
     Indication: TUBERCULOSIS
     Dosage: 500 MILLIGRAM, QD
     Route: 048
     Dates: start: 20181127
  7. PYRAZINAMIDE. [Suspect]
     Active Substance: PYRAZINAMIDE
     Indication: TUBERCULOSIS
     Dosage: 750 MILLIGRAM, QD
     Route: 048
     Dates: start: 20181127
  8. DELAMANID [Suspect]
     Active Substance: DELAMANID
     Indication: TUBERCULOSIS
     Dosage: 50 MILLIGRAM, BID TABLET
     Route: 048
     Dates: start: 20181210
  9. NEVIRAPINE. [Concomitant]
     Active Substance: NEVIRAPINE
     Indication: RETROVIRAL INFECTION
     Dosage: UNK
     Route: 065
  10. TERIZIDONE [Suspect]
     Active Substance: TERIZIDONE
     Indication: TUBERCULOSIS
     Dosage: 325 MILLIGRAM, QD
     Route: 048
     Dates: start: 20181220
  11. ELTROXIN [Concomitant]
     Active Substance: LEVOTHYROXINE
     Indication: PRODUCT USED FOR UNKNOWN INDICATION
     Dosage: UNK
     Route: 065
  12. AMINOSALICYLIC ACID [Suspect]
     Active Substance: AMINOSALICYLIC ACID
     Indication: TUBERCULOSIS
     Dosage: 4.6 GM, QD
     Route: 048
     Dates: start: 20190107
  13. MULTIPLE VITAMINS [Concomitant]
     Active Substance: VITAMINS
     Indication: PRODUCT USED FOR UNKNOWN INDICATION
     Dosage: UNK
     Route: 065
  14. ETHAMBUTOL [Suspect]
     Active Substance: ETHAMBUTOL HYDROCHLORIDE
     Indication: TUBERCULOSIS
     Dosage: 400 MILLIGRAM, QD
     Route: 048
     Dates: start: 20181127

REACTIONS (1)
  - Therapeutic response decreased [Unknown]

NARRATIVE: CASE EVENT DATE: 20190527
